FAERS Safety Report 4809115-7 (Version None)
Quarter: 2005Q4

REPORT INFORMATION
  Report Type: 
  Country: None (occurrence: None)
  Receive Date: 20051021
  Receipt Date: 20051010
  Transmission Date: 20060501
  Serious: Yes (Death)
  Sender: FDA-Public Use
  Company Number: GXKR2005GB01774

PATIENT
  Age: 18 Year
  Sex: Male

DRUGS (4)
  1. DIAZEPAM [Suspect]
  2. MORPHINE [Suspect]
  3. HEROIN (DIAMORPHINE) [Suspect]
     Dosage: INTRAVENOUS
     Route: 042
  4. DOXEPIN HCL [Suspect]
     Indication: DEPRESSION

REACTIONS (4)
  - CIRCULATORY COLLAPSE [None]
  - DRUG ABUSER [None]
  - DRUG INTERACTION INHIBITION [None]
  - DRUG LEVEL INCREASED [None]
